FAERS Safety Report 4422477-8 (Version None)
Quarter: 2004Q3

REPORT INFORMATION
  Report Type: 
  Country: None (occurrence: None)
  Receive Date: 20040806
  Receipt Date: 20040726
  Transmission Date: 20050211
  Serious: Yes (Death)
  Sender: FDA-Public Use
  Company Number: US-JNJFOC-20040707368

PATIENT
  Age: 56 Year
  Sex: Male

DRUGS (2)
  1. RISPERDAL [Suspect]
     Indication: SCHIZOPHRENIA
     Dosage: 10 MG, 2 IN 1 DAY, ORAL
     Route: 048
     Dates: start: 19960101
  2. STELAZINE (TRIFLUOPERAZINE HYDROCHLORIDE) TABLETS [Concomitant]

REACTIONS (1)
  - MYOCARDIAL INFARCTION [None]
